FAERS Safety Report 6920875-1 (Version None)
Quarter: 2010Q3

REPORT INFORMATION
  Report Type: 
  Country: None (occurrence: None)
  Receive Date: 20100812
  Receipt Date: 20100805
  Transmission Date: 20110219
  Serious: Yes (Hospitalization)
  Sender: FDA-Public Use
  Company Number: ES-BAYER-201035067GPV

PATIENT
  Age: 80 Year
  Sex: Female
  Weight: 46 kg

DRUGS (10)
  1. ASPIRIN [Suspect]
     Indication: PRODUCT USED FOR UNKNOWN INDICATION
     Dosage: TOTAL DAILY DOSE: 100 MG
     Route: 048
     Dates: start: 20100525, end: 20100709
  2. NOLOTIL CAPSULAS [Suspect]
     Indication: BACK PAIN
     Route: 048
     Dates: start: 20100525, end: 20100709
  3. ENALAPRIL [Suspect]
     Indication: HYPERTENSION
     Route: 048
     Dates: start: 20100525, end: 20100709
  4. SPIRIVA [Suspect]
     Indication: BRONCHOSPASM
     Route: 055
     Dates: start: 20100525, end: 20100709
  5. MOTILIUM [Suspect]
     Indication: VOMITING
     Route: 048
     Dates: start: 20100525, end: 20100709
  6. CODEISAN JARABE [Suspect]
     Indication: COUGH
     Route: 048
     Dates: start: 20100525, end: 20100709
  7. URBASON [Suspect]
     Indication: BRONCHOSPASM
     Dosage: TOTAL DAILY DOSE: 8 MG
     Route: 048
     Dates: start: 20100525, end: 20100604
  8. OMEPRAZOLE [Suspect]
     Indication: PRODUCT USED FOR UNKNOWN INDICATION
     Dosage: TOTAL DAILY DOSE: 20 MG
     Route: 048
     Dates: start: 20100525, end: 20100709
  9. LEXATIN [Suspect]
     Indication: PRODUCT USED FOR UNKNOWN INDICATION
     Dosage: TOTAL DAILY DOSE: 1.5 MG
     Route: 048
     Dates: start: 20100525, end: 20100709
  10. CALCIUM-SANDOZ D [Suspect]
     Indication: PRODUCT USED FOR UNKNOWN INDICATION
     Dosage: TOTAL DAILY DOSE: 1 DF
     Route: 048
     Dates: start: 20100525, end: 20100709

REACTIONS (1)
  - STEVENS-JOHNSON SYNDROME [None]
